FAERS Safety Report 20391314 (Version 1)
Quarter: 2022Q1

REPORT INFORMATION
  Report Type: Spontaneous
  Country: US (occurrence: US)
  Receive Date: 20220128
  Receipt Date: 20220128
  Transmission Date: 20220424
  Serious: Yes (Other)
  Sender: FDA-Public Use
  Company Number: US-SA-SAC20220127000965

PATIENT
  Age: 46 Year
  Sex: Female

DRUGS (1)
  1. DUPIXENT [Suspect]
     Active Substance: DUPILUMAB
     Indication: Dermatitis atopic
     Dosage: 300 MG, INJECT 2 SYRINGES SUBCUTANEOUSLY ON DAY 1, THEN INJECT 1 SYRINGE ON DAY 15 , THEN 1 SYRINGE
     Route: 058
     Dates: start: 202201

REACTIONS (1)
  - Neoplasm malignant [Unknown]
